FAERS Safety Report 9559914 (Version 2)
Quarter: 2013Q3

REPORT INFORMATION
  Report Type: Spontaneous
  Country: US (occurrence: None)
  Receive Date: 20130821
  Receipt Date: 20130821
  Transmission Date: 20140515
  Serious: Yes (Other)
  Sender: FDA-Public Use
  Company Number: 1000044921

PATIENT
  Age: 66 Year
  Sex: Female

DRUGS (3)
  1. TUDORZA PRESSAIR (ACLIDINIUM BROMIDE) (400 MICROGRAM, POWDER) [Suspect]
     Indication: CHRONIC OBSTRUCTIVE PULMONARY DISEASE
     Dosage: 800MCG (400MCG, 2 IN 1 D) RESPIRATORY (INHALATION)
     Route: 055
     Dates: start: 20130404
  2. TUDORZA PRESSAIR (ACLIDINIUM BROMIDE) (400 MICROGRAM, POWDER) [Suspect]
     Indication: EMPHYSEMA
     Dosage: 800MCG (400MCG, 2 IN 1 D) RESPIRATORY (INHALATION)
     Route: 055
     Dates: start: 20130404
  3. TUDORZA PRESSAIR (ACLIDINIUM BROMIDE) (400 MICROGRAM, POWDER) [Suspect]
     Indication: ASTHMA
     Dosage: 800MCG (400MCG, 2 IN 1 D) RESPIRATORY (INHALATION)
     Route: 055
     Dates: start: 20130404

REACTIONS (2)
  - Drug ineffective [None]
  - Tremor [None]
